FAERS Safety Report 13442572 (Version 1)
Quarter: 2017Q2

REPORT INFORMATION
  Report Type: Spontaneous
  Country: US (occurrence: US)
  Receive Date: 20170414
  Receipt Date: 20170414
  Transmission Date: 20170830
  Serious: No
  Sender: FDA-Public Use
  Company Number: None

PATIENT
  Age: 47 Year
  Sex: Male
  Weight: 77 kg

DRUGS (13)
  1. AZATHIOPRINE. [Concomitant]
     Active Substance: AZATHIOPRINE
  2. PANTOPRAZOLE DELAYED RELEASE [Concomitant]
  3. PREDNISONE. [Concomitant]
     Active Substance: PREDNISONE
  4. CEFDINIR. [Concomitant]
     Active Substance: CEFDINIR
  5. LORAZEPAM. [Concomitant]
     Active Substance: LORAZEPAM
  6. NIFEDIPINE. [Concomitant]
     Active Substance: NIFEDIPINE
  7. POSACONAZOLE [Suspect]
     Active Substance: POSACONAZOLE
     Dates: start: 201605
  8. ESCITALOPRAM [Concomitant]
     Active Substance: ESCITALOPRAM OXALATE
  9. MIRTAZAPINE. [Concomitant]
     Active Substance: MIRTAZAPINE
  10. CARVEDILOL. [Concomitant]
     Active Substance: CARVEDILOL
  11. CLONAZEPAM. [Concomitant]
     Active Substance: CLONAZEPAM
  12. LIDOCAINE TRANSDERMAL PATCH [Concomitant]
     Active Substance: LIDOCAINE
  13. SEVELAMER CARBONATE. [Concomitant]
     Active Substance: SEVELAMER CARBONATE

REACTIONS (5)
  - Left ventricular hypertrophy [None]
  - Hypokinesia [None]
  - Cardiomyopathy [None]
  - Dyspnoea exertional [None]
  - Ejection fraction decreased [None]
